FAERS Safety Report 9893661 (Version 19)
Quarter: 2019Q4

REPORT INFORMATION
  Report Type: Report from Study
  Country: US (occurrence: US)
  Receive Date: 20140213
  Receipt Date: 20191227
  Transmission Date: 20200122
  Serious: Yes (Hospitalization, Other)
  Sender: FDA-Public Use
  Company Number: US-SA-2014SA008018

PATIENT
  Age: 65 Year
  Sex: Female

DRUGS (5)
  1. FENTANYL. [Concomitant]
     Active Substance: FENTANYL
     Indication: PAIN
     Dosage: UNK
  2. TERIFLUNOMIDE. [Suspect]
     Active Substance: TERIFLUNOMIDE
     Indication: MULTIPLE SCLEROSIS
     Dosage: 14 MG,QD
     Route: 048
     Dates: start: 20140104, end: 20140106
  3. TERIFLUNOMIDE. [Suspect]
     Active Substance: TERIFLUNOMIDE
     Dosage: 14 MG,QD
     Route: 048
     Dates: start: 20150205, end: 20150716
  4. PREVALITE [Concomitant]
     Active Substance: CHOLESTYRAMINE
     Dosage: UNK
  5. TERIFLUNOMIDE. [Suspect]
     Active Substance: TERIFLUNOMIDE
     Dosage: 14 MG,QD
     Route: 048
     Dates: start: 20140311, end: 20140325

REACTIONS (40)
  - Hysterectomy [Unknown]
  - Clumsiness [Not Recovered/Not Resolved]
  - Aggression [Unknown]
  - Neuralgia [Unknown]
  - Muscular weakness [Unknown]
  - Lethargy [Unknown]
  - Oropharyngeal pain [Unknown]
  - Ear infection fungal [Recovering/Resolving]
  - Fatigue [Unknown]
  - Skin papilloma [Unknown]
  - Skin haemorrhage [Unknown]
  - Muscle spasms [Unknown]
  - Chest pain [Unknown]
  - Dizziness [Unknown]
  - Tachycardia [Recovering/Resolving]
  - Inflammation [Unknown]
  - Otorrhoea [Recovering/Resolving]
  - Dysphagia [Unknown]
  - Staphylococcal infection [Recovered/Resolved]
  - Gait disturbance [Not Recovered/Not Resolved]
  - Feeling abnormal [Unknown]
  - Cognitive disorder [Unknown]
  - Rash [Recovering/Resolving]
  - Oesophageal motility disorder [Unknown]
  - Pyrexia [Unknown]
  - Migraine [Recovering/Resolving]
  - Multiple sclerosis relapse [Unknown]
  - Pain [Recovering/Resolving]
  - Headache [Recovering/Resolving]
  - Dyspnoea [Unknown]
  - Malaise [Unknown]
  - Atrial fibrillation [Recovering/Resolving]
  - Stress [Unknown]
  - Lymphadenopathy [Unknown]
  - Lip pain [Unknown]
  - Choking [Unknown]
  - Lip erythema [Unknown]
  - Mood swings [Unknown]
  - Memory impairment [Unknown]
  - Unevaluable event [Unknown]

NARRATIVE: CASE EVENT DATE: 2014
